FAERS Safety Report 7439241-8 (Version None)
Quarter: 2011Q2

REPORT INFORMATION
  Report Type: 
  Country: None (occurrence: None)
  Receive Date: 20110427
  Receipt Date: 20110418
  Transmission Date: 20111010
  Serious: Yes (Death, Other)
  Sender: FDA-Public Use
  Company Number: CA-ELI_LILLY_AND_COMPANY-CA201104005043

PATIENT
  Sex: Female
  Weight: 112.5 kg

DRUGS (7)
  1. WELLBUTRIN [Concomitant]
  2. EFFEXOR XR [Concomitant]
  3. TRAZODONE HCL [Concomitant]
  4. ADALAT CC [Concomitant]
  5. ZYPREXA [Suspect]
     Dosage: 10 MG, UNK
  6. ATIVAN [Concomitant]
  7. ZESTORETIC [Concomitant]

REACTIONS (8)
  - CHEILITIS [None]
  - DYSLIPIDAEMIA [None]
  - HEPATIC STEATOSIS [None]
  - DEATH [None]
  - ALPHA-1 ANTI-TRYPSIN DEFICIENCY [None]
  - TYPE 2 DIABETES MELLITUS [None]
  - HYPOACUSIS [None]
  - NODULE [None]
